FAERS Safety Report 24742212 (Version 1)
Quarter: 2024Q4

REPORT INFORMATION
  Report Type: Spontaneous
  Country: US (occurrence: None)
  Receive Date: 20241217
  Receipt Date: 20241217
  Transmission Date: 20250115
  Serious: No
  Sender: REDHILL BIOPHARMA INC.
  Company Number: US-ARIS GLOBAL-RDH202410-000046

PATIENT
  Sex: Female

DRUGS (1)
  1. TALICIA [Suspect]
     Active Substance: AMOXICILLIN\OMEPRAZOLE MAGNESIUM\RIFABUTIN
     Indication: Helicobacter infection
     Dosage: UNK
     Route: 065

REACTIONS (5)
  - Oropharyngeal discomfort [Unknown]
  - Peripheral swelling [Recovered/Resolved]
  - Abdominal pain upper [Recovered/Resolved]
  - Pruritus [Not Recovered/Not Resolved]
  - Urticaria [Unknown]

NARRATIVE: CASE EVENT DATE: 20240101
